FAERS Safety Report 4914182-6 (Version None)
Quarter: 2006Q1

REPORT INFORMATION
  Report Type: 
  Country: None (occurrence: None)
  Receive Date: 20060216
  Receipt Date: 20060201
  Transmission Date: 20060701
  Serious: Yes (Hospitalization)
  Sender: FDA-Public Use
  Company Number: ESWYE354801FEB06

PATIENT
  Age: 33 Year
  Sex: Female

DRUGS (4)
  1. ENBREL [Suspect]
     Indication: RHEUMATOID ARTHRITIS
     Route: 058
  2. VALPROATE SODIUM [Interacting]
     Indication: EPILEPSY
     Dosage: UNKNOWN
  3. UNSPECIFIED NON-STEROIDAL ANTI-INFLAMMATORY AGENT [Concomitant]
     Dosage: UNKNOWN
  4. CORTICOSTEROIDS [Concomitant]
     Dosage: LOW DOSE

REACTIONS (6)
  - DEAFNESS [None]
  - DEMYELINATION [None]
  - DIFFICULTY IN WALKING [None]
  - DRUG INTERACTION [None]
  - OPTIC NEURITIS [None]
  - VIIITH NERVE LESION [None]
